FAERS Safety Report 8027641-7 (Version None)
Quarter: 2011Q4

REPORT INFORMATION
  Report Type: 
  Country: None (occurrence: None)
  Receive Date: 20111130
  Receipt Date: 20110523
  Transmission Date: 20120403
  Serious: Yes (Other)
  Sender: FDA-Public Use
  Company Number: US201004002659

PATIENT
  Age: 49 Year
  Sex: Male
  Weight: 115.6 kg

DRUGS (3)
  1. SIMVASTATIN [Concomitant]
  2. BYETTA [Suspect]
     Dates: start: 20080324, end: 20080412
  3. EXENATID UNK STRENGTH PEN, DISPOSABLE DEVICE (EXENATIDE PEN (UNKNOWN S [Concomitant]

REACTIONS (1)
  - PANCREATITIS [None]
